FAERS Safety Report 4289387-0 (Version None)
Quarter: 2004Q1

REPORT INFORMATION
  Report Type: 
  Country: None (occurrence: None)
  Receive Date: 20040206
  Receipt Date: 20040126
  Transmission Date: 20041129
  Serious: Yes (Hospitalization)
  Sender: FDA-Public Use
  Company Number: HQWYE557727JAN04

PATIENT
  Sex: Male

DRUGS (1)
  1. ADVIL [Suspect]
     Indication: FIBROMYALGIA
     Dosage: ORAL, SEVERAL YEARS
     Route: 048

REACTIONS (1)
  - PEPTIC ULCER [None]
